FAERS Safety Report 24277005 (Version 1)
Quarter: 2024Q3

REPORT INFORMATION
  Report Type: Spontaneous
  Country: PT (occurrence: PT)
  Receive Date: 20240903
  Receipt Date: 20240903
  Transmission Date: 20241016
  Serious: Yes (Other)
  Sender: PFIZER
  Company Number: PT-PFIZER INC-202400245624

PATIENT
  Age: 50 Year
  Sex: Female

DRUGS (1)
  1. TRASTUZUMAB [Suspect]
     Active Substance: TRASTUZUMAB
     Dosage: UNK

REACTIONS (3)
  - Organising pneumonia [Unknown]
  - Pulmonary toxicity [Unknown]
  - Haemophagocytic lymphohistiocytosis [Unknown]
